FAERS Safety Report 23565070 (Version 1)
Quarter: 2024Q1

REPORT INFORMATION
  Report Type: Report from Study
  Country: US (occurrence: US)
  Receive Date: 20240226
  Receipt Date: 20240226
  Transmission Date: 20240410
  Serious: Yes (Hospitalization, Other)
  Sender: FDA-Public Use
  Company Number: US-BEH-2024167970

PATIENT
  Age: 29 Year
  Sex: Female
  Weight: 140.59 kg

DRUGS (3)
  1. BERINERT [Suspect]
     Active Substance: HUMAN C1-ESTERASE INHIBITOR
     Indication: Hereditary angioedema
     Dosage: UNK
     Route: 058
     Dates: start: 20240122, end: 20240122
  2. BERINERT [Suspect]
     Active Substance: HUMAN C1-ESTERASE INHIBITOR
     Indication: Prophylaxis
     Dosage: UNK
     Route: 058
     Dates: start: 20240122, end: 20240122
  3. BERINERT [Suspect]
     Active Substance: HUMAN C1-ESTERASE INHIBITOR
     Dosage: 9000 INTERNATIONAL UNIT, EVERY 3 TO 4 DAYS
     Route: 058

REACTIONS (4)
  - No adverse event [Unknown]
  - Maternal exposure during pregnancy [Unknown]
  - Hernia [Not Recovered/Not Resolved]
  - Pre-eclampsia [Not Recovered/Not Resolved]
